FAERS Safety Report 10631736 (Version 2)
Quarter: 2014Q4

REPORT INFORMATION
  Report Type: Spontaneous
  Country: AU (occurrence: AU)
  Receive Date: 20141205
  Receipt Date: 20141210
  Transmission Date: 20150529
  Serious: Yes (Life-Threatening, Hospitalization, Disabling, Other)
  Sender: FDA-Public Use
  Company Number: PHHY2014AU153472

PATIENT
  Age: 75 Year
  Sex: Female

DRUGS (6)
  1. HYDROCORTISONE. [Concomitant]
     Active Substance: HYDROCORTISONE
     Indication: ADRENALECTOMY
     Dosage: 20/10/20MG,QD
     Route: 048
     Dates: start: 2011
  2. SIGNIFOR [Suspect]
     Active Substance: PASIREOTIDE
     Indication: NELSON^S SYNDROME
     Dosage: 40 MG, QMO
     Route: 030
     Dates: start: 20141013
  3. IRBESARTAN. [Concomitant]
     Active Substance: IRBESARTAN
     Indication: BLOOD PRESSURE
     Dosage: 300 MG, QD
     Route: 048
  4. SIGNIFOR [Suspect]
     Active Substance: PASIREOTIDE
     Indication: OFF LABEL USE
     Dosage: 40 MG, QMO
     Route: 030
     Dates: start: 20141117
  5. METOPROLOL [Concomitant]
     Active Substance: METOPROLOL
     Indication: BLOOD PRESSURE
     Dosage: 100 MG, BID
     Route: 048
     Dates: start: 2011
  6. FLUDROCORTISONE [Concomitant]
     Active Substance: FLUDROCORTISONE
     Indication: ADRENALECTOMY
     Dosage: 50 UG, QD
     Route: 048
     Dates: start: 2011

REACTIONS (6)
  - Cardiac arrest [Recovered/Resolved with Sequelae]
  - Electrocardiogram QT prolonged [Unknown]
  - Troponin increased [Unknown]
  - Blood creatinine increased [Unknown]
  - Hyperdynamic left ventricle [Unknown]
  - Pericardial effusion [Unknown]

NARRATIVE: CASE EVENT DATE: 20141121
